FAERS Safety Report 8621691-5 (Version None)
Quarter: 2012Q3

REPORT INFORMATION
  Report Type: 
  Country: None (occurrence: None)
  Receive Date: 20120825
  Receipt Date: 20120802
  Transmission Date: 20120928
  Serious: No
  Sender: FDA-Public Use
  Company Number: US-009507513-1208USA002479

PATIENT

DRUGS (9)
  1. PEGASYS [Suspect]
     Indication: HEPATITIS C
     Dosage: UNK
     Dates: start: 20120619
  2. GABAPENTIN [Concomitant]
     Indication: CONVULSION
     Dosage: 400 MG, BID
  3. METFORMIN HCL [Concomitant]
     Indication: DIABETES MELLITUS
     Dosage: 500 MG, BID
  4. LEVOTHYROXINE SODIUM [Concomitant]
     Indication: THYROID DISORDER
     Dosage: 0.075 MG, QD
  5. ACYCLOVIR [Concomitant]
     Indication: HERPES VIRUS INFECTION
     Dosage: HALF TABLET, PRN
  6. VICTRELIS [Suspect]
     Indication: HEPATITIS C
     Dosage: UNK
     Dates: start: 20120722
  7. REBETOL [Suspect]
     Indication: HEPATITIS C
     Dosage: UNK
     Dates: start: 20120619
  8. LISINOPRIL [Concomitant]
     Indication: HYPERTENSION
     Dosage: 30 MG, QD
  9. LEVETIRACETAM [Concomitant]
     Indication: CONVULSION
     Dosage: 750 MG, BID

REACTIONS (4)
  - DRY MOUTH [None]
  - STOMATITIS [None]
  - FATIGUE [None]
  - DECREASED APPETITE [None]
